FAERS Safety Report 15569506 (Version 1)
Quarter: 2018Q4

REPORT INFORMATION
  Report Type: Spontaneous
  Country: IN (occurrence: IN)
  Receive Date: 20181031
  Receipt Date: 20181031
  Transmission Date: 20190205
  Serious: No
  Sender: FDA-Public Use
  Company Number: IN-LUPIN LIMITED-2018-01414

PATIENT
  Age: 32 Year
  Sex: Female

DRUGS (4)
  1. NITROBEST FIL.C.TAB.SR 100 MG [Suspect]
     Active Substance: NITROFURANTOIN
     Indication: PROPHYLAXIS
     Dosage: 1 DF, BID
     Route: 048
     Dates: start: 20171106, end: 20180212
  2. COBADEX FORTE [Concomitant]
     Indication: PRODUCT USED FOR UNKNOWN INDICATION
     Dosage: 1 DF, QD
     Route: 048
     Dates: start: 20171106
  3. NITROBEST FIL.C.TAB.SR 100 MG [Suspect]
     Active Substance: NITROFURANTOIN
     Dosage: 1 DF, BID
     Route: 048
     Dates: start: 20180213, end: 20180222
  4. URIMAX                             /01280302/ [Concomitant]
     Indication: PRODUCT USED FOR UNKNOWN INDICATION
     Dosage: 1 DF, QD
     Route: 048
     Dates: start: 20171106

REACTIONS (3)
  - Headache [Recovered/Resolved]
  - Pyrexia [Not Recovered/Not Resolved]
  - Chills [Recovered/Resolved]

NARRATIVE: CASE EVENT DATE: 20180220
